FAERS Safety Report 4686439-8 (Version None)
Quarter: 2005Q2

REPORT INFORMATION
  Report Type: 
  Country: None (occurrence: None)
  Receive Date: 20050606
  Receipt Date: 20050526
  Transmission Date: 20051028
  Serious: Yes (Other)
  Sender: FDA-Public Use
  Company Number: 2005080817

PATIENT
  Age: 87 Year
  Sex: Female
  Weight: 63 kg

DRUGS (5)
  1. PHENYTOIN [Suspect]
     Indication: EPILEPSY
     Dosage: 225 MG (225 MG, 1 IN 1 D), ORAL
     Route: 048
     Dates: start: 20050503
  2. MAGNESIUM GLYCEROPHOSPHATE (MAGNESIUM GLYCEROPHOSPHATE) [Suspect]
     Indication: HYPOMAGNESAEMIA
     Dosage: (2 IN 1 D), ORAL
     Route: 048
     Dates: start: 20050503
  3. BENDROFLUMETHIAZIDE (BENDROFLUMETHIAZIDE) [Concomitant]
  4. PERINDOPRIL (PERINDOPRIL) [Concomitant]
  5. CALCIUM (CALCIUM) [Concomitant]

REACTIONS (9)
  - ABDOMINAL PAIN [None]
  - CONFUSIONAL STATE [None]
  - DRUG INTERACTION [None]
  - DRUG LEVEL DECREASED [None]
  - EYELID PTOSIS [None]
  - HALLUCINATION [None]
  - HEADACHE [None]
  - NERVOUS SYSTEM DISORDER [None]
  - TONGUE PARALYSIS [None]
